FAERS Safety Report 7057937-7 (Version None)
Quarter: 2010Q4

REPORT INFORMATION
  Report Type: 
  Country: None (occurrence: None)
  Receive Date: 20101022
  Receipt Date: 20101017
  Transmission Date: 20110411
  Serious: Yes (Other)
  Sender: FDA-Public Use
  Company Number: US-PFIZER INC-2008000775

PATIENT
  Sex: Female
  Weight: 59 kg

DRUGS (5)
  1. CHANTIX [Suspect]
     Indication: SMOKING CESSATION THERAPY
     Dosage: 0.5MG DAILY
     Route: 048
     Dates: start: 20071129
  2. CHANTIX [Suspect]
     Dosage: 0.5 MG, DAILY
     Route: 048
     Dates: start: 20080101
  3. CHANTIX [Suspect]
     Dosage: 0.5MG DAILY
     Dates: start: 20101007
  4. OXYCODONE [Concomitant]
     Dosage: UNK
  5. NAPROXEN [Concomitant]
     Dosage: UNK

REACTIONS (3)
  - ABASIA [None]
  - SEXUAL DYSFUNCTION [None]
  - STRESS [None]
